FAERS Safety Report 20675740 (Version 2)
Quarter: 2023Q1

REPORT INFORMATION
  Report Type: Spontaneous
  Country: US (occurrence: US)
  Receive Date: 20220405
  Receipt Date: 20230301
  Transmission Date: 20230418
  Serious: No
  Sender: FDA-Public Use
  Company Number: US-PFIZER INC-2020248912

PATIENT
  Age: 86 Year
  Sex: Female

DRUGS (1)
  1. IBRANCE [Suspect]
     Active Substance: PALBOCICLIB
     Dosage: TAKE 1 TAB ON DAYS 1-21 ^NOT A BREAK IN DOSING^

REACTIONS (5)
  - Stomatitis [Unknown]
  - Skin disorder [Unknown]
  - Malaise [Unknown]
  - Weight gain poor [Unknown]
  - Weight decreased [Unknown]
